FAERS Safety Report 16846508 (Version 1)
Quarter: 2019Q3

REPORT INFORMATION
  Report Type: Spontaneous
  Country: US (occurrence: US)
  Receive Date: 20190924
  Receipt Date: 20190924
  Transmission Date: 20191005
  Serious: Yes (Hospitalization)
  Sender: FDA-Public Use
  Company Number: US-LEADING PHARMA, LLC-2074848

PATIENT
  Age: 80 Year
  Sex: Female

DRUGS (4)
  1. HYDROCHLOROTHIAZIDE. [Suspect]
     Active Substance: HYDROCHLOROTHIAZIDE
  2. DULOXETINE. [Concomitant]
     Active Substance: DULOXETINE
  3. CALCIUM SUPPLEMENT [Concomitant]
     Active Substance: CALCIUM
  4. VITAMIN D SUPPLEMENT [Concomitant]
     Active Substance: VITAMIN D NOS

REACTIONS (1)
  - Hypervitaminosis D [None]
